FAERS Safety Report 6245695-5 (Version None)
Quarter: 2009Q2

REPORT INFORMATION
  Report Type: 
  Country: None (occurrence: None)
  Receive Date: 20090625
  Receipt Date: 20090610
  Transmission Date: 20091009
  Serious: Yes (Hospitalization)
  Sender: FDA-Public Use
  Company Number: JP-GENENTECH-285437

PATIENT
  Sex: Female

DRUGS (3)
  1. BEVACIZUMAB [Suspect]
     Indication: COLON CANCER
     Dosage: 220 MG, Q2W
     Route: 042
     Dates: start: 20090309, end: 20090525
  2. IRINOTECAN HCL [Concomitant]
     Indication: COLON CANCER
     Dosage: UNK
     Dates: start: 20090309, end: 20090525
  3. TS-1 [Concomitant]
     Indication: COLON CANCER
     Dosage: UNK
     Dates: start: 20090309

REACTIONS (1)
  - CHOLANGITIS SCLEROSING [None]
